FAERS Safety Report 4344722-X (Version None)
Quarter: 2004Q2

REPORT INFORMATION
  Report Type: 
  Country: None (occurrence: None)
  Receive Date: 20040420
  Receipt Date: 20040405
  Transmission Date: 20050107
  Serious: Yes (Other)
  Sender: FDA-Public Use
  Company Number: 2004207763DE

PATIENT

DRUGS (1)
  1. METHYLPREDNISOLONE [Suspect]
     Dosage: ORAL
     Route: 048

REACTIONS (4)
  - DISEASE PROGRESSION [None]
  - DYSARTHRIA [None]
  - LEUKOENCEPHALOMYELITIS [None]
  - MENTAL STATUS CHANGES [None]
